FAERS Safety Report 21399987 (Version 1)
Quarter: 2022Q4

REPORT INFORMATION
  Report Type: Spontaneous
  Country: CA (occurrence: CA)
  Receive Date: 20221002
  Receipt Date: 20221002
  Transmission Date: 20230113
  Serious: Yes (Other)
  Sender: FDA-Public Use
  Company Number: CA-JNJFOC-20220961266

PATIENT
  Age: 25 Year
  Sex: Female
  Weight: 60 kg

DRUGS (13)
  1. REMICADE [Suspect]
     Active Substance: INFLIXIMAB
     Indication: Colitis ulcerative
     Route: 041
  2. BETAMETHASONE DIPROPIONATE;SALICYLIC ACID [Concomitant]
  3. CALCIUM [Concomitant]
     Active Substance: CALCIUM
  4. CLOBETASOL [Concomitant]
     Active Substance: CLOBETASOL
  5. LEVONORGESTREL AND ETHINYL ESTRADIOL [Concomitant]
     Active Substance: ETHINYL ESTRADIOL\LEVONORGESTREL
  6. CHOLECALCIFEROL [Concomitant]
     Active Substance: CHOLECALCIFEROL
  7. FERROUS FUMARATE [Concomitant]
     Active Substance: FERROUS FUMARATE
  8. MESALAMINE [Concomitant]
     Active Substance: MESALAMINE
  9. METHOTREXATE [Concomitant]
     Active Substance: METHOTREXATE
     Indication: Psoriasis
  10. MESALAMINE [Concomitant]
     Active Substance: MESALAMINE
  11. OXAZEPAM [Concomitant]
     Active Substance: OXAZEPAM
  12. PREDNISONE [Concomitant]
     Active Substance: PREDNISONE
  13. ZOPICLONE [Concomitant]
     Active Substance: ZOPICLONE

REACTIONS (4)
  - Gingival graft [Unknown]
  - Weight decreased [Unknown]
  - Hypophagia [Unknown]
  - Off label use [Unknown]
